FAERS Safety Report 5223281-3 (Version None)
Quarter: 2007Q1

REPORT INFORMATION
  Report Type: 
  Country: None (occurrence: None)
  Receive Date: 20070124
  Receipt Date: 20070109
  Transmission Date: 20070707
  Serious: Yes (Life-Threatening)
  Sender: FDA-Public Use
  Company Number: 2007RR-05239

PATIENT
  Age: 54 Year
  Sex: Male

DRUGS (3)
  1. SIMVASTATIN [Suspect]
     Dosage: 600 MG, ORAL
     Route: 048
  2. RAMIPRIL [Concomitant]
  3. RANITIDINE [Concomitant]

REACTIONS (2)
  - BLOOD PRESSURE DECREASED [None]
  - MULTIPLE DRUG OVERDOSE [None]
